FAERS Safety Report 8814142 (Version 1)
Quarter: 2012Q4

REPORT INFORMATION
  Report Type: Spontaneous
  Country: US (occurrence: None)
  Receive Date: 20120925
  Receipt Date: 20120925
  Transmission Date: 20130627
  Serious: Yes (Life-Threatening)
  Sender: FDA-Public Use
  Company Number: FK201202720

PATIENT
  Sex: Female

DRUGS (6)
  1. LIDOCAINE [Suspect]
     Indication: LOCAL ANAESTHESIA
     Route: 042
  2. STEROIDS [Suspect]
  3. METHOTREXATE (METHOTREXATE) [Concomitant]
  4. ETANERCEPT (ETANERCEPT) [Concomitant]
  5. PREDNISONE (PREDNISONE) [Concomitant]
  6. HYDROCODONE/ACETAMINOPHEN (REMEDEINE /01204101/) [Concomitant]

REACTIONS (6)
  - Cardio-respiratory arrest [None]
  - Hypertension [None]
  - Hyperthermia [None]
  - Brain injury [None]
  - Cerebral hypoperfusion [None]
  - Pneumocephalus [None]
